FAERS Safety Report 21177922 (Version 1)
Quarter: 2022Q3

REPORT INFORMATION
  Report Type: Spontaneous
  Country: IN (occurrence: IN)
  Receive Date: 20220805
  Receipt Date: 20220805
  Transmission Date: 20221026
  Serious: Yes (Death, Other)
  Sender: FDA-Public Use
  Company Number: IN-PFIZER INC-202101566600

PATIENT
  Age: 50 Year
  Sex: Female

DRUGS (4)
  1. LORLATINIB [Suspect]
     Active Substance: LORLATINIB
     Dosage: 100 MG, 1X/DAY
     Route: 048
     Dates: start: 20210904
  2. ZINCOVIT [ASCORBIC ACID;BIOTIN;CHROMIUM;COLECALCIFEROL;COPPER;FOLIC AC [Concomitant]
     Dosage: UNK, 1X/DAY(0-1-0 )
  3. VITAMIN D NOS [Concomitant]
     Active Substance: VITAMIN D NOS
     Dosage: 60000 (ILLEGIBLE) ONCE X ILLEGIBLE
  4. FUROSEMIDE\SPIRONOLACTONE [Concomitant]
     Active Substance: FUROSEMIDE\SPIRONOLACTONE
     Dosage: 1-0-0 X 10DAYS

REACTIONS (8)
  - Death [Fatal]
  - Hallucination [Unknown]
  - Blood pressure systolic increased [Recovering/Resolving]
  - Neoplasm progression [Unknown]
  - Heart rate increased [Not Recovered/Not Resolved]
  - Arthralgia [Unknown]
  - Weight increased [Recovering/Resolving]
  - Sleep disorder [Unknown]

NARRATIVE: CASE EVENT DATE: 20211012
